FAERS Safety Report 10741947 (Version 1)
Quarter: 2015Q1

REPORT INFORMATION
  Report Type: Spontaneous
  Country: US (occurrence: None)
  Receive Date: 20150123
  Receipt Date: 20150123
  Transmission Date: 20150721
  Serious: No
  Sender: FDA-Public Use
  Company Number: None

PATIENT
  Age: 73 Year
  Sex: Female

DRUGS (5)
  1. VITAMINS-CENTRUM [Concomitant]
  2. D-3 [Concomitant]
     Active Substance: CHOLECALCIFEROL
  3. FLAX OIL [Concomitant]
  4. MOVIPREP [Suspect]
     Active Substance: ASCORBIC ACID\POLYETHYLENE GLYCOL 3350\POTASSIUM CHLORIDE\SODIUM ASCORBATE\SODIUM CHLORIDE\SODIUM SULFATE
     Indication: COLONOSCOPY
     Dosage: 1 QT. OF MIXTURE ?SHOULD HAVE BEEN 4 DOSES 15 MIN, APART?BY MOUTH
     Route: 048
     Dates: start: 20150104, end: 20150104
  5. LUTEIN [Concomitant]
     Active Substance: LUTEIN

REACTIONS (2)
  - Gastrointestinal disorder [None]
  - Vomiting [None]

NARRATIVE: CASE EVENT DATE: 20150104
